FAERS Safety Report 19968532 (Version 1)
Quarter: 2021Q4

REPORT INFORMATION
  Report Type: Spontaneous
  Country: US (occurrence: US)
  Receive Date: 20211018
  Receipt Date: 20211018
  Transmission Date: 20220303
  Serious: No
  Sender: FDA-Public Use
  Company Number: None

PATIENT
  Sex: Male

DRUGS (1)
  1. HUMAN IMMUNOGLOBULIN G [Suspect]
     Active Substance: HUMAN IMMUNOGLOBULIN G
     Indication: Immunodeficiency common variable
     Dosage: ?          OTHER DOSE:AS DIRECTED;????OTHER FREQUENCY : UD
     Route: 042
     Dates: start: 202108

REACTIONS (5)
  - Fatigue [None]
  - Oropharyngeal pain [None]
  - Flushing [None]
  - Needle issue [None]
  - Infusion site haemorrhage [None]
